FAERS Safety Report 20000374 (Version 1)
Quarter: 2021Q4

REPORT INFORMATION
  Report Type: Spontaneous
  Country: LU (occurrence: LU)
  Receive Date: 20211027
  Receipt Date: 20211027
  Transmission Date: 20220303
  Serious: Yes (Disabling)
  Sender: FDA-Public Use
  Company Number: None

PATIENT
  Age: 44 Year
  Sex: Male
  Weight: 71 kg

DRUGS (4)
  1. DUPIXENT [Suspect]
     Active Substance: DUPILUMAB
     Indication: Aspirin-exacerbated respiratory disease
     Dosage: 1 DF
     Dates: start: 20210801, end: 20210901
  2. MODERNA COVID-19 VACCINE [Suspect]
     Active Substance: CX-024414
     Indication: COVID-19 immunisation
     Dosage: 1 DF
     Route: 030
     Dates: start: 20210903, end: 20210903
  3. SPUTNIK V (GAM-COVID-VAC) [Concomitant]
     Indication: COVID-19 immunisation
     Dosage: 1 DF
     Route: 030
     Dates: start: 20210505, end: 20210505
  4. SPUTNIK V (GAM-COVID-VAC) [Concomitant]
     Dosage: 1 DF
     Route: 030
     Dates: start: 20210415, end: 20210415

REACTIONS (2)
  - Vision blurred [Recovered/Resolved with Sequelae]
  - Retinal artery thrombosis [Recovered/Resolved with Sequelae]

NARRATIVE: CASE EVENT DATE: 20210812
